FAERS Safety Report 15347162 (Version 1)
Quarter: 2018Q3

REPORT INFORMATION
  Report Type: Spontaneous
  Country: US (occurrence: US)
  Receive Date: 20180904
  Receipt Date: 20180904
  Transmission Date: 20181010
  Serious: No
  Sender: FDA-Public Use
  Company Number: US-BIOGEN-2013BI004098

PATIENT
  Sex: Male

DRUGS (1)
  1. AVONEX [Suspect]
     Active Substance: INTERFERON BETA-1A
     Indication: MULTIPLE SCLEROSIS
     Route: 030
     Dates: start: 20110601

REACTIONS (6)
  - Drug ineffective [Unknown]
  - Influenza like illness [Recovered/Resolved]
  - Headache [Unknown]
  - Fatigue [Unknown]
  - Nasopharyngitis [Unknown]
  - Chills [Unknown]
